FAERS Safety Report 6971438-3 (Version None)
Quarter: 2010Q3

REPORT INFORMATION
  Report Type: 
  Country: None (occurrence: None)
  Receive Date: 20100908
  Receipt Date: 20100902
  Transmission Date: 20110219
  Serious: Yes (Death)
  Sender: FDA-Public Use
  Company Number: US-ASTRAZENECA-2010SE41390

PATIENT

DRUGS (2)
  1. NEXIUM [Suspect]
     Route: 048
  2. PROTONIX [Concomitant]

REACTIONS (1)
  - HEPATIC FAILURE [None]
